FAERS Safety Report 24847065 (Version 1)
Quarter: 2025Q1

REPORT INFORMATION
  Report Type: Spontaneous
  Country: JP (occurrence: JP)
  Receive Date: 20250115
  Receipt Date: 20250115
  Transmission Date: 20250409
  Serious: Yes (Other)
  Sender: STRIDES
  Company Number: JP-STRIDES ARCOLAB LIMITED-2025SP000567

PATIENT

DRUGS (1)
  1. HYDROCORTISONE [Suspect]
     Active Substance: HYDROCORTISONE
     Indication: Hormone replacement therapy
     Route: 065

REACTIONS (1)
  - Pneumatosis intestinalis [Unknown]
